FAERS Safety Report 15067104 (Version 1)
Quarter: 2018Q2

REPORT INFORMATION
  Report Type: Report from Study
  Country: DE (occurrence: DE)
  Receive Date: 20180626
  Receipt Date: 20180626
  Transmission Date: 20180711
  Serious: Yes (Hospitalization, Disabling, Other)
  Sender: FDA-Public Use
  Company Number: DE-GLAXOSMITHKLINE-DE2018109287

PATIENT
  Age: 65 Year
  Sex: Male
  Weight: 103 kg

DRUGS (26)
  1. IBUPROFEN. [Concomitant]
     Active Substance: IBUPROFEN
     Indication: PRODUCT USED FOR UNKNOWN INDICATION
     Dosage: UNK
     Route: 065
  2. XELEVIA [Concomitant]
     Active Substance: SITAGLIPTIN PHOSPHATE
     Indication: BLOOD GLUCOSE
     Dosage: 100 MG, QD
     Route: 048
     Dates: start: 2015
  3. VERAPAMIL [Concomitant]
     Active Substance: VERAPAMIL HYDROCHLORIDE
     Indication: CARDIAC DISORDER
     Dosage: 40 MG, QD
     Route: 048
     Dates: start: 2017
  4. MOVICOL [Concomitant]
     Active Substance: POLYETHYLENE GLYCOL 3350\POTASSIUM CHLORIDE\SODIUM BICARBONATE\SODIUM CHLORIDE
     Indication: PRODUCT USED FOR UNKNOWN INDICATION
     Dosage: UNK
     Route: 065
  5. COSENTYX [Concomitant]
     Active Substance: SECUKINUMAB
     Indication: RHEUMATIC DISORDER
     Dosage: 2 DF, UNK
     Route: 058
     Dates: start: 20170701
  6. TORASEMID 1A PHARMA [Suspect]
     Active Substance: TORSEMIDE
     Indication: CARDIAC FAILURE CHRONIC
     Dosage: 20 MG, QD
     Route: 048
     Dates: start: 20160212
  7. TORASEMID 1A PHARMA [Suspect]
     Active Substance: TORSEMIDE
     Dosage: 10 MG, QD (AT LUNCH TIME)
     Route: 048
     Dates: start: 2012
  8. NOVAMINSULFON [Concomitant]
     Active Substance: METAMIZOLE
     Indication: PRODUCT USED FOR UNKNOWN INDICATION
     Dosage: 4X35 DROPS, PRN
     Route: 048
  9. OMEPRAZOL [Concomitant]
     Active Substance: OMEPRAZOLE
     Indication: GASTROINTESTINAL DISORDER
     Dosage: 40 MG, QD
     Route: 048
     Dates: start: 2008
  10. PREDNISOLONE. [Concomitant]
     Active Substance: PREDNISOLONE
     Indication: RHEUMATIC DISORDER
     Dosage: 7.5 MG, QD
     Route: 048
     Dates: start: 20170216
  11. NALOXEGOL [Concomitant]
     Active Substance: NALOXEGOL
     Indication: PRODUCT USED FOR UNKNOWN INDICATION
     Dosage: UNK
     Route: 048
  12. EPLERENONE. [Concomitant]
     Active Substance: EPLERENONE
     Indication: DIURETIC THERAPY
  13. TORASEMID 1A PHARMA [Suspect]
     Active Substance: TORSEMIDE
     Dosage: 20 MG, QD (AT MORNING)
     Route: 048
     Dates: start: 2016
  14. EPLERENONE. [Concomitant]
     Active Substance: EPLERENONE
     Indication: CARDIAC DISORDER
     Dosage: 50 MG, QD
     Route: 048
     Dates: start: 2017
  15. BUDICORT [Concomitant]
     Indication: BRONCHIAL DISORDER
     Dosage: UNK UNK, QD
     Route: 048
     Dates: start: 1998
  16. TESTOPEL [Concomitant]
     Active Substance: TESTOSTERONE
     Indication: PRODUCT USED FOR UNKNOWN INDICATION
     Dosage: 50 MG, QD
     Route: 048
     Dates: start: 2012
  17. VALSARTAN. [Concomitant]
     Active Substance: VALSARTAN
     Indication: BLOOD PRESSURE MEASUREMENT
     Dosage: 160 MG, QD
     Route: 048
     Dates: start: 2016
  18. DEKRISTOL [Concomitant]
     Active Substance: CHOLECALCIFEROL
     Indication: PRODUCT USED FOR UNKNOWN INDICATION
     Dosage: 20000 IU, UNK
     Route: 048
  19. TORASEMID 1A PHARMA [Suspect]
     Active Substance: TORSEMIDE
     Dosage: 10 MG, QD (AS NEEDED)
     Route: 048
     Dates: start: 20160212
  20. SALBUTAMOL [Concomitant]
     Active Substance: ALBUTEROL
     Indication: PRODUCT USED FOR UNKNOWN INDICATION
     Dosage: UNK UNK, PRN
     Route: 048
  21. FENTANYL. [Concomitant]
     Active Substance: FENTANYL
     Indication: PAIN
     Dosage: 75 MG, QD
     Route: 048
     Dates: start: 20140601
  22. FORMATRIS [Concomitant]
     Active Substance: FORMOTEROL FUMARATE
     Indication: PRODUCT USED FOR UNKNOWN INDICATION
     Dosage: 1 DF, BID (1 PUFF IN MORNING, 1 PUFF IN EVENING)
     Route: 055
     Dates: start: 1998
  23. DICLOFENAC [Suspect]
     Active Substance: DICLOFENAC
     Indication: PRODUCT USED FOR UNKNOWN INDICATION
     Dosage: UNK
     Route: 065
  24. MORPHINE [Concomitant]
     Active Substance: MORPHINE
     Indication: PAIN
     Dosage: UNK
     Route: 065
  25. MOVANTIK [Concomitant]
     Active Substance: NALOXEGOL OXALATE
     Indication: LAXATIVE SUPPORTIVE CARE
     Dosage: 25 MG, QD
     Route: 065
     Dates: start: 20170601
  26. ALLOPURINOL. [Concomitant]
     Active Substance: ALLOPURINOL
     Indication: GOUT
     Dosage: 300 MG, QD
     Route: 048
     Dates: start: 2013

REACTIONS (11)
  - Weight fluctuation [Unknown]
  - Nocturia [Not Recovered/Not Resolved]
  - Feeling cold [Not Recovered/Not Resolved]
  - Nasopharyngitis [Not Recovered/Not Resolved]
  - Rheumatic disorder [Not Recovered/Not Resolved]
  - Concomitant disease aggravated [Not Recovered/Not Resolved]
  - Blood triglycerides increased [Unknown]
  - Dry mouth [Unknown]
  - Pulmonary oedema [Recovered/Resolved]
  - Blood alkaline phosphatase increased [Unknown]
  - Drug intolerance [Unknown]

NARRATIVE: CASE EVENT DATE: 201708
